FAERS Safety Report 9124431 (Version 1)
Quarter: 2013Q1

REPORT INFORMATION
  Report Type: Spontaneous
  Country: US (occurrence: US)
  Receive Date: 20130116
  Receipt Date: 20130116
  Transmission Date: 20140127
  Serious: Yes (Other)
  Sender: FDA-Public Use
  Company Number: US-PFIZER INC-2013010922

PATIENT
  Age: 53 Year
  Sex: Female

DRUGS (15)
  1. METHOTREXATE SODIUM [Suspect]
     Indication: CUTANEOUS SARCOIDOSIS
  2. MYCOPHENOLATE MOFETIL [Suspect]
     Indication: CUTANEOUS SARCOIDOSIS
     Dosage: 500 MG, 2X/DAY
     Dates: start: 200312
  3. MYCOPHENOLATE MOFETIL [Suspect]
     Dosage: 4 G, 1X/DAY
  4. MYCOPHENOLATE MOFETIL [Suspect]
     Dosage: 1 G, 2X/DAY
  5. MYCOPHENOLATE MOFETIL [Suspect]
     Dosage: UNK
     Dates: start: 200710
  6. MYCOPHENOLATE MOFETIL [Suspect]
     Dosage: UNK
     Dates: end: 200805
  7. PREDNISONE [Suspect]
     Indication: CUTANEOUS SARCOIDOSIS
     Dosage: 15 MG/DAY
     Route: 048
  8. PREDNISONE [Suspect]
     Dosage: 10 MG/DAY
     Route: 048
  9. PREDNISONE [Suspect]
     Dosage: UNK
     Route: 048
     Dates: end: 201111
  10. TACROLIMUS [Suspect]
     Indication: CUTANEOUS SARCOIDOSIS
     Route: 062
  11. MINOCYCLINE [Suspect]
     Indication: CUTANEOUS SARCOIDOSIS
  12. HYDROXYCHLOROQUINE [Suspect]
     Indication: CUTANEOUS SARCOIDOSIS
  13. IMIQUIMOD [Suspect]
     Indication: CUTANEOUS SARCOIDOSIS
     Dosage: UNK
     Route: 061
  14. INFLIXIMAB [Concomitant]
     Indication: CUTANEOUS SARCOIDOSIS
     Dosage: 7.5 MG/KG, AT WEEKS 0, 2, AND 6, AND EVERY 8 WEEKS
     Dates: start: 200405
  15. INFLIXIMAB [Concomitant]
     Dosage: 7.5 MG/KG, EVERY 8 WEEKS

REACTIONS (4)
  - Osteonecrosis [Unknown]
  - Diabetes mellitus [Unknown]
  - Hypertension [Unknown]
  - Drug ineffective [Unknown]
